FAERS Safety Report 22320465 (Version 1)
Quarter: 2023Q2

REPORT INFORMATION
  Report Type: Spontaneous
  Country: US (occurrence: None)
  Receive Date: 20230512
  Receipt Date: 20230512
  Transmission Date: 20230722
  Serious: Yes (Hospitalization)
  Sender: FDA-Public Use
  Company Number: None

PATIENT
  Sex: Male

DRUGS (1)
  1. LENALIDOMIDE [Suspect]
     Active Substance: LENALIDOMIDE
     Dosage: 10MG OTHER ORAL
     Route: 048

REACTIONS (4)
  - Blood glucose increased [None]
  - Hypotension [None]
  - Therapy interrupted [None]
  - Muscle spasms [None]
